FAERS Safety Report 15129894 (Version 2)
Quarter: 2018Q3

REPORT INFORMATION
  Report Type: Spontaneous
  Country: IT (occurrence: IT)
  Receive Date: 20180711
  Receipt Date: 20180921
  Transmission Date: 20181010
  Serious: Yes (Hospitalization)
  Sender: FDA-Public Use
  Company Number: IT-SAKK-2018SA182916AA

PATIENT
  Age: 36 Year
  Sex: Female

DRUGS (6)
  1. LEMTRADA [Suspect]
     Active Substance: ALEMTUZUMAB
     Indication: MULTIPLE SCLEROSIS
     Dosage: 1 DF, QD
     Route: 041
     Dates: start: 20180618, end: 20180619
  2. FOLINA [FOLIC ACID] [Concomitant]
     Dosage: UNK UNK, UNK
     Route: 065
  3. DIBASE [Concomitant]
     Active Substance: CHOLECALCIFEROL
     Dosage: UNK UNK, UNK
     Route: 065
  4. PARACETAMOL [Concomitant]
     Active Substance: ACETAMINOPHEN
     Dosage: UNK UNK, UNK
     Route: 065
  5. SOLU?MEDROL [Concomitant]
     Active Substance: METHYLPREDNISOLONE SODIUM SUCCINATE
     Dosage: UNK UNK, UNK
     Route: 065
  6. ZOVIRAX COLD SORE [Concomitant]
     Dosage: UNK UNK, UNK
     Route: 065

REACTIONS (6)
  - Inflammation [Recovering/Resolving]
  - Candida infection [Recovering/Resolving]
  - Hyperthermia [Recovering/Resolving]
  - Lymphadenopathy [Recovering/Resolving]
  - Sinus bradycardia [Recovering/Resolving]
  - Oropharyngeal pain [Recovering/Resolving]

NARRATIVE: CASE EVENT DATE: 20180619
